FAERS Safety Report 5876634-4 (Version None)
Quarter: 2008Q3

REPORT INFORMATION
  Report Type: 
  Country: None (occurrence: None)
  Receive Date: 20080908
  Receipt Date: 20080827
  Transmission Date: 20090109
  Serious: Yes (Death)
  Sender: FDA-Public Use
  Company Number: FABR-1000348

PATIENT
  Age: 44 Year
  Sex: Male

DRUGS (2)
  1. FABRAZYME [Suspect]
     Indication: FABRY'S DISEASE
     Dosage: 1 MG/KG, Q2W, INTRAVENOUS
     Route: 042
     Dates: start: 20030528, end: 20080718
  2. FABRAZYME [Suspect]

REACTIONS (18)
  - ABDOMINAL PAIN [None]
  - BLOOD PRESSURE INCREASED [None]
  - CHEST DISCOMFORT [None]
  - CHILLS [None]
  - ERYTHEMA [None]
  - INFUSION RELATED REACTION [None]
  - MYOCARDIAL INFARCTION [None]
  - NAUSEA [None]
  - PAIN [None]
  - PARAESTHESIA [None]
  - PERIORBITAL OEDEMA [None]
  - PITTING OEDEMA [None]
  - PO2 DECREASED [None]
  - PRURITUS [None]
  - PYREXIA [None]
  - SUDDEN DEATH [None]
  - URTICARIA [None]
  - VOMITING [None]
